FAERS Safety Report 4294092-0 (Version None)
Quarter: 2004Q1

REPORT INFORMATION
  Report Type: 
  Country: None (occurrence: None)
  Receive Date: 20040212
  Receipt Date: 20040212
  Transmission Date: 20041129
  Serious: Yes (Congenital Anomaly)
  Sender: FDA-Public Use
  Company Number: None

PATIENT
  Age: 33 Year
  Sex: Male
  Weight: 97.5234 kg

DRUGS (1)
  1. LARIAM [Suspect]
     Indication: MALARIA PROPHYLAXIS
     Dosage: 250 MG , WEEKLY ORAL
     Route: 048
     Dates: start: 20031101, end: 20031201

REACTIONS (4)
  - AGGRESSION [None]
  - ANGER [None]
  - IMPRISONMENT [None]
  - PSYCHOTIC DISORDER [None]
